FAERS Safety Report 5884035-8 (Version None)
Quarter: 2008Q3

REPORT INFORMATION
  Report Type: 
  Country: None (occurrence: None)
  Receive Date: 20080911
  Receipt Date: 20080903
  Transmission Date: 20090109
  Serious: Yes (Death)
  Sender: FDA-Public Use
  Company Number: 100#03#2008-04444

PATIENT
  Sex: Male

DRUGS (10)
  1. DICLOFENAC [Suspect]
     Indication: DRUG USE FOR UNKNOWN INDICATION
  2. DOXYCYCLINE [Suspect]
     Indication: DRUG USE FOR UNKNOWN INDICATION
  3. TORSEMIDE [Suspect]
     Indication: DRUG USE FOR UNKNOWN INDICATION
  4. THEOPHYLLINE [Suspect]
     Indication: DRUG USE FOR UNKNOWN INDICATION
  5. CITALOPRAM HYDROBROMIDE [Suspect]
     Indication: DRUG USE FOR UNKNOWN INDICATION
  6. CORDARONE [Suspect]
     Indication: DRUG USE FOR UNKNOWN INDICATION
  7. RISPERDAL [Suspect]
     Indication: DRUG USE FOR UNKNOWN INDICATION
  8. VIANI (SALMETEROL, FLUTICASONE) [Suspect]
     Indication: DRUG USE FOR UNKNOWN INDICATION
  9. NEUROCIL (LEVOMEPROMAZINS) [Concomitant]
     Indication: DRUG USE FOR UNKNOWN INDICATION
  10. UNKNOWN [Concomitant]

REACTIONS (2)
  - LEFT VENTRICULAR FAILURE [None]
  - SMALL INTESTINAL PERFORATION [None]
